FAERS Safety Report 4600119-6 (Version None)
Quarter: 2005Q1

REPORT INFORMATION
  Report Type: 
  Country: None (occurrence: None)
  Receive Date: 20050307
  Receipt Date: 20041216
  Transmission Date: 20050727
  Serious: Yes (Other)
  Sender: FDA-Public Use
  Company Number: PHBS2004JP17111

PATIENT
  Age: 73 Year
  Sex: Female

DRUGS (6)
  1. LOXONIN [Concomitant]
     Dosage: 2 DF, UNK
     Route: 048
     Dates: start: 20041109, end: 20041113
  2. BANAN [Concomitant]
     Dosage: 2 DF, UNK
     Route: 048
     Dates: start: 20041109, end: 20041113
  3. ACINON [Concomitant]
     Dosage: 2 DF, UNK
     Route: 048
     Dates: start: 20041109, end: 20041113
  4. AMLODIN [Concomitant]
     Indication: HYPERTENSION
     Dosage: 5 MG, UNK
     Route: 048
     Dates: start: 20041216
  5. DIOVAN [Suspect]
     Indication: HYPERTENSION
     Dosage: 40 MG, QD
     Route: 048
     Dates: start: 20041109, end: 20041114
  6. DIOVAN [Suspect]
     Dosage: 80 MG, QD
     Route: 048
     Dates: start: 20041115

REACTIONS (3)
  - CEREBRAL INFARCTION [None]
  - DRUG INEFFECTIVE [None]
  - PHOTOPSIA [None]
